FAERS Safety Report 8969065 (Version 1)
Quarter: 2012Q4

REPORT INFORMATION
  Report Type: 
  Country: US (occurrence: US)
  Receive Date: 20121218
  Receipt Date: 20121218
  Transmission Date: 20130627
  Serious: No
  Sender: FDA-Public Use
  Company Number: US-BRISTOL-MYERS SQUIBB COMPANY-16706269

PATIENT
  Age: 84 Year
  Sex: Male
  Weight: 81.63 kg

DRUGS (2)
  1. ABILIFY TABS 10 MG [Suspect]
     Indication: DEPRESSION
     Dosage: discontinued for one month and restarted at 10 mg po daily on 21 Jun 2012
     Route: 048
  2. SINEQUAN [Concomitant]

REACTIONS (1)
  - Tardive dyskinesia [Unknown]
